FAERS Safety Report 8227799 (Version 2)
Quarter: 2012Q4

REPORT INFORMATION
  Report Type: 
  Country: US (occurrence: US)
  Receive Date: 20111103
  Receipt Date: 20121023
  Transmission Date: 20130627
  Serious: Yes (Other)
  Sender: FDA-Public Use
  Company Number: US-AMGEN-USASP2011040122

PATIENT
  Age: 46 Year
  Sex: Female

DRUGS (16)
  1. ENBREL [Suspect]
     Indication: RHEUMATOID ARTHRITIS
     Dosage: 50 mg, qwk
     Route: 058
     Dates: start: 201104
  2. VITAMIN C                          /00008001/ [Concomitant]
     Dosage: UNK
     Dates: start: 20060105
  3. VITAMIN E                          /00110501/ [Concomitant]
     Dosage: UNK
     Dates: start: 20060105
  4. LECITHIN [Concomitant]
     Dosage: UNK
     Dates: start: 20060105
  5. TRIAMTERENE/HCTZ [Concomitant]
     Dosage: UNK
     Dates: start: 200603
  6. IRON [Concomitant]
     Dosage: 325 mg, UNK
     Dates: start: 200612
  7. PLAQUENIL                          /00072602/ [Concomitant]
     Dosage: UNK
     Dates: start: 200612
  8. PROZAC [Concomitant]
     Dosage: 20 mg, UNK
     Dates: start: 20100209
  9. DOXAZOSIN                          /00639302/ [Concomitant]
     Indication: BLOOD PRESSURE
     Dosage: UNK
     Dates: start: 20100209
  10. MINOCYCLINE [Concomitant]
     Dosage: UNK UNK, bid
     Dates: start: 20100310
  11. FISH OIL [Concomitant]
     Dosage: UNK
     Dates: start: 20100513
  12. PROBIOTICS [Concomitant]
     Dosage: UNK
     Dates: start: 20120513
  13. VITAMIN D /00107901/ [Concomitant]
     Dosage: 4000 IU, qd
     Dates: start: 20110103
  14. GINGER                             /01646602/ [Concomitant]
     Dosage: UNK
     Dates: start: 20110428
  15. TURMERIC [Concomitant]
     Dosage: UNK
     Dates: start: 20110428
  16. BROMELAIN [Concomitant]
     Dosage: UNK
     Dates: start: 20110428

REACTIONS (4)
  - Anaemia [Not Recovered/Not Resolved]
  - Gastrooesophageal reflux disease [Not Recovered/Not Resolved]
  - Oropharyngeal pain [Not Recovered/Not Resolved]
  - Sinusitis [Not Recovered/Not Resolved]
